FAERS Safety Report 15098322 (Version 2)
Quarter: 2018Q3

REPORT INFORMATION
  Report Type: Report from Study
  Country: IT (occurrence: IT)
  Receive Date: 20180702
  Receipt Date: 20180705
  Transmission Date: 20181010
  Serious: Yes (Hospitalization)
  Sender: FDA-Public Use
  Company Number: IT-TEVA-2018-IT-916831

PATIENT
  Age: 76 Year
  Sex: Male

DRUGS (7)
  1. EUTIROX [Concomitant]
     Active Substance: LEVOTHYROXINE SODIUM
     Route: 065
  2. LANSOPRAZOLE. [Concomitant]
     Active Substance: LANSOPRAZOLE
     Route: 065
  3. RISPERDAL [Suspect]
     Active Substance: RISPERIDONE
     Route: 065
  4. ZESTRIL [Concomitant]
     Active Substance: LISINOPRIL
     Route: 065
  5. QUETIAPINE. [Suspect]
     Active Substance: QUETIAPINE
     Route: 048
  6. ASCRIPTIN [Concomitant]
     Active Substance: ASPIRIN
     Route: 065
  7. CARBOLITHIUM [Suspect]
     Active Substance: LITHIUM CARBONATE
     Route: 065

REACTIONS (3)
  - Depressed level of consciousness [Unknown]
  - Hypokinesia [Unknown]
  - Language disorder [Unknown]

NARRATIVE: CASE EVENT DATE: 20180116
